FAERS Safety Report 21933331 (Version 1)
Quarter: 2023Q1

REPORT INFORMATION
  Report Type: Report from Study
  Country: BR (occurrence: BR)
  Receive Date: 20230131
  Receipt Date: 20230131
  Transmission Date: 20230418
  Serious: Yes (Other)
  Sender: FDA-Public Use
  Company Number: BR-JNJFOC-20230152561

PATIENT
  Age: 6 Decade
  Sex: Female
  Weight: 64 kg

DRUGS (1)
  1. INFLIXIMAB [Suspect]
     Active Substance: INFLIXIMAB
     Indication: Ankylosing spondylitis
     Route: 041
     Dates: start: 20170824, end: 2018

REACTIONS (4)
  - Psoriatic arthropathy [Unknown]
  - Fibromyalgia [Unknown]
  - Insomnia [Unknown]
  - Alopecia [Unknown]

NARRATIVE: CASE EVENT DATE: 20180101
